FAERS Safety Report 8396310-6 (Version None)
Quarter: 2012Q2

REPORT INFORMATION
  Report Type: 
  Country: None (occurrence: None)
  Receive Date: 20120530
  Receipt Date: 20120518
  Transmission Date: 20120825
  Serious: Yes (Other)
  Sender: FDA-Public Use
  Company Number: CA-ELI_LILLY_AND_COMPANY-CA201205007696

PATIENT
  Age: 77 Year
  Sex: Female

DRUGS (7)
  1. AMLODIPINE BESYLATE [Concomitant]
  2. FORTEO [Suspect]
     Indication: OSTEOPOROSIS
     Dosage: 20 UG, QD
     Route: 058
     Dates: start: 20110414, end: 20120419
  3. CETIRIZINE HCL [Concomitant]
  4. CALCIUM CARBONATE [Concomitant]
  5. ASPIRIN [Concomitant]
     Dosage: 81 MG, UNK
  6. FOSINOPRIL SODIUM [Concomitant]
  7. CITALOPRAM HYDROBROMIDE [Concomitant]

REACTIONS (8)
  - NAUSEA [None]
  - DIARRHOEA [None]
  - ABDOMINAL DISTENSION [None]
  - INTENTIONAL DRUG MISUSE [None]
  - RECTAL HAEMORRHAGE [None]
  - FREQUENT BOWEL MOVEMENTS [None]
  - CONSTIPATION [None]
  - GASTROINTESTINAL DISORDER [None]
